FAERS Safety Report 16812449 (Version 1)
Quarter: 2019Q3

REPORT INFORMATION
  Report Type: Spontaneous
  Country: US (occurrence: US)
  Receive Date: 20190916
  Receipt Date: 20190916
  Transmission Date: 20191005
  Serious: No
  Sender: FDA-Public Use
  Company Number: US-JNJFOC-20190912121

PATIENT
  Sex: Female
  Weight: 81.72 kg

DRUGS (10)
  1. PANTOPRAZOLE [Concomitant]
     Active Substance: PANTOPRAZOLE
  2. GLIMEPIRIDE. [Concomitant]
     Active Substance: GLIMEPIRIDE
  3. TRAJENTA [Concomitant]
     Active Substance: LINAGLIPTIN
  4. CARVEDILOL. [Concomitant]
     Active Substance: CARVEDILOL
  5. PRAVASTATIN. [Concomitant]
     Active Substance: PRAVASTATIN
  6. TRAMADOL. [Concomitant]
     Active Substance: TRAMADOL
  7. XARELTO [Suspect]
     Active Substance: RIVAROXABAN
     Indication: PULMONARY EMBOLISM
     Route: 048
  8. GABAPENTIN. [Concomitant]
     Active Substance: GABAPENTIN
  9. FUROSEMIDE. [Concomitant]
     Active Substance: FUROSEMIDE
  10. CLOPIDOGREL [Concomitant]
     Active Substance: CLOPIDOGREL BISULFATE

REACTIONS (1)
  - Ocular hyperaemia [Not Recovered/Not Resolved]

NARRATIVE: CASE EVENT DATE: 2019
